FAERS Safety Report 9487187 (Version 3)
Quarter: 2013Q4

REPORT INFORMATION
  Report Type: Spontaneous
  Country: CA (occurrence: None)
  Receive Date: 20130823
  Receipt Date: 20131029
  Transmission Date: 20140711
  Serious: Yes (Hospitalization)
  Sender: FDA-Public Use
  Company Number: CA-012733

PATIENT
  Age: 91 Year
  Sex: Male

DRUGS (7)
  1. FIRMAGON [Suspect]
     Indication: PROSTATE CANCER
     Route: 058
     Dates: start: 201112
  2. PLAVIX [Concomitant]
  3. LIPITOR [Concomitant]
  4. ASPIRIN [Concomitant]
  5. BICALUTAMIDE [Concomitant]
  6. VITAMIN D NOS [Concomitant]
  7. VITAMIN B12 NOS [Concomitant]

REACTIONS (3)
  - Cerebrovascular accident [None]
  - Vertigo [None]
  - Bladder cancer [None]
